FAERS Safety Report 5504806-7 (Version None)
Quarter: 2007Q4

REPORT INFORMATION
  Report Type: 
  Country: None (occurrence: None)
  Receive Date: 20071031
  Receipt Date: 20071031
  Transmission Date: 20080405
  Serious: Yes (Other)
  Sender: FDA-Public Use
  Company Number: None

PATIENT
  Sex: Male
  Weight: 79.3795 kg

DRUGS (1)
  1. BUDIPRION XL 300MG TEVA PHARMACEUTICALS [Suspect]
     Indication: ATTENTION DEFICIT/HYPERACTIVITY DISORDER
     Dosage: 300MG  ONCE IN THE AM  PO
     Route: 048
     Dates: start: 20070501, end: 20071001

REACTIONS (9)
  - ANGER [None]
  - CONDITION AGGRAVATED [None]
  - DEPRESSION [None]
  - FEELINGS OF WORTHLESSNESS [None]
  - MENTAL DISORDER [None]
  - MOOD SWINGS [None]
  - PHARMACEUTICAL PRODUCT COMPLAINT [None]
  - SOCIAL PHOBIA [None]
  - SUICIDAL IDEATION [None]
